FAERS Safety Report 18547061 (Version 2)
Quarter: 2020Q4

REPORT INFORMATION
  Report Type: Spontaneous
  Country: IL (occurrence: IL)
  Receive Date: 20201125
  Receipt Date: 20201209
  Transmission Date: 20210114
  Serious: Yes (Other)
  Sender: FDA-Public Use
  Company Number: IL-AMERICAN REGENT INC-2020002524

PATIENT
  Sex: Female

DRUGS (1)
  1. VENOFER [Suspect]
     Active Substance: IRON SUCROSE
     Indication: PRODUCT USED FOR UNKNOWN INDICATION
     Dosage: 5 AMP (50 MG)
     Route: 042

REACTIONS (2)
  - Maternal exposure during pregnancy [Unknown]
  - Anaphylactic shock [Unknown]
